FAERS Safety Report 8237529-4 (Version None)
Quarter: 2012Q1

REPORT INFORMATION
  Report Type: 
  Country: None (occurrence: None)
  Receive Date: 20120327
  Receipt Date: 20120320
  Transmission Date: 20120608
  Serious: Yes (Hospitalization, Other)
  Sender: FDA-Public Use
  Company Number: PHEH2012US002356

PATIENT
  Sex: Female

DRUGS (2)
  1. GILENYA [Suspect]
     Indication: MULTIPLE SCLEROSIS
     Dosage: 0.5 MG, QD
     Route: 048
     Dates: start: 20120125, end: 20120125
  2. PREGABALIN [Concomitant]

REACTIONS (18)
  - BLOOD CALCIUM DECREASED [None]
  - PALPITATIONS [None]
  - BLOOD CHLORIDE INCREASED [None]
  - SINUS TACHYCARDIA [None]
  - VENTRICULAR EXTRASYSTOLES [None]
  - CHEST PAIN [None]
  - SINUS BRADYCARDIA [None]
  - NAUSEA [None]
  - LYMPHOCYTE COUNT DECREASED [None]
  - DIZZINESS [None]
  - DYSPNOEA [None]
  - SUPRAVENTRICULAR EXTRASYSTOLES [None]
  - BLOOD CREATINE PHOSPHOKINASE INCREASED [None]
  - HAEMATOCRIT DECREASED [None]
  - RED BLOOD CELL COUNT DECREASED [None]
  - HAEMOGLOBIN DECREASED [None]
  - CHEST DISCOMFORT [None]
  - WHITE BLOOD CELL COUNT DECREASED [None]
